FAERS Safety Report 7446101-5 (Version None)
Quarter: 2011Q2

REPORT INFORMATION
  Report Type: 
  Country: None (occurrence: None)
  Receive Date: 20110429
  Receipt Date: 20091027
  Transmission Date: 20111010
  Serious: Yes (Hospitalization)
  Sender: FDA-Public Use
  Company Number: A0814248A

PATIENT
  Age: 78 Year
  Sex: Female
  Weight: 90.9 kg

DRUGS (14)
  1. IMDUR [Concomitant]
  2. ZETIA [Concomitant]
  3. AVANDIA [Suspect]
     Dosage: 4MG TWICE PER DAY
     Route: 048
     Dates: start: 20000101, end: 20060101
  4. AMARYL [Concomitant]
  5. METFORMIN [Concomitant]
  6. DYNACIRC [Concomitant]
  7. TOPROL-XL [Concomitant]
  8. HYZAAR [Concomitant]
  9. NORVASC [Concomitant]
  10. AVANDAMET [Suspect]
     Indication: DIABETES MELLITUS
     Route: 048
  11. METOPROLOL [Concomitant]
  12. ASPIRIN [Concomitant]
  13. ZOCOR [Concomitant]
  14. LOPRESSOR [Concomitant]

REACTIONS (5)
  - CORONARY ARTERY DISEASE [None]
  - CARDIAC FAILURE CONGESTIVE [None]
  - ATRIOVENTRICULAR BLOCK COMPLETE [None]
  - ANGINA UNSTABLE [None]
  - TRANSIENT ISCHAEMIC ATTACK [None]
